FAERS Safety Report 22687293 (Version 3)
Quarter: 2023Q4

REPORT INFORMATION
  Report Type: Spontaneous
  Country: US (occurrence: US)
  Receive Date: 20230710
  Receipt Date: 20231004
  Transmission Date: 20240110
  Serious: No
  Sender: FDA-Public Use
  Company Number: US-SA-SAC20230706001051

PATIENT
  Age: 58 Year
  Sex: Female

DRUGS (32)
  1. DUPIXENT [Suspect]
     Active Substance: DUPILUMAB
     Indication: Iron deficiency anaemia
     Dosage: 200 MG, QOW
     Route: 058
     Dates: start: 20230412
  2. DUPIXENT [Suspect]
     Active Substance: DUPILUMAB
     Indication: Asthma
  3. DEXTROAMPHETAMINE SULFATE [Concomitant]
     Active Substance: DEXTROAMPHETAMINE SULFATE
  4. ALBUTEROL SULFATE [Concomitant]
     Active Substance: ALBUTEROL SULFATE
  5. ARIPIPRAZOLE [Concomitant]
     Active Substance: ARIPIPRAZOLE
  6. ATORVASTATIN [Concomitant]
     Active Substance: ATORVASTATIN
  7. AZITHROMYCIN [Concomitant]
     Active Substance: AZITHROMYCIN
  8. BACLOFEN [Concomitant]
     Active Substance: BACLOFEN
  9. CLONAZEPAM [Concomitant]
     Active Substance: CLONAZEPAM
  10. COLESTIPOL [Concomitant]
     Active Substance: COLESTIPOL
  11. DEXILANT [Concomitant]
     Active Substance: DEXLANSOPRAZOLE
  12. DICYCLOMINE [Concomitant]
     Active Substance: DICYCLOMINE HYDROCHLORIDE
  13. ELIQUIS [Concomitant]
     Active Substance: APIXABAN
  14. EPINEPHRINE [Concomitant]
     Active Substance: EPINEPHRINE
  15. FLUTICASONE [Concomitant]
     Active Substance: FLUTICASONE
  16. FUROSEMIDE [Concomitant]
     Active Substance: FUROSEMIDE
  17. IBUPROFEN [Concomitant]
     Active Substance: IBUPROFEN
  18. IPRATROPIUM [Concomitant]
     Active Substance: IPRATROPIUM
  19. MIRTAZAPINE [Concomitant]
     Active Substance: MIRTAZAPINE
  20. MODAFINIL [Concomitant]
     Active Substance: MODAFINIL
  21. ONDANSETRON [Concomitant]
     Active Substance: ONDANSETRON
  22. OXYBUTYNIN [Concomitant]
     Active Substance: OXYBUTYNIN
  23. SHINGRIX [Concomitant]
     Active Substance: RECOMBINANT VARICELLA ZOSTER VIRUS (VZV) GLYCOPROTEIN E
  24. SUMATRIPTAN [Concomitant]
     Active Substance: SUMATRIPTAN
  25. TRELEGY ELLIPTA [Concomitant]
     Active Substance: FLUTICASONE FUROATE\UMECLIDINIUM BROMIDE\VILANTEROL TRIFENATATE
  26. VALACYCLOVIR HYDROCHLORIDE [Concomitant]
     Active Substance: VALACYCLOVIR HYDROCHLORIDE
  27. VENLAFAXINE [Concomitant]
     Active Substance: VENLAFAXINE HYDROCHLORIDE
  28. LEVOCETIRIZINE DIHYDROCHLORIDE [Concomitant]
     Active Substance: LEVOCETIRIZINE DIHYDROCHLORIDE
  29. OXYCODONE/APAP [Concomitant]
     Active Substance: ACETAMINOPHEN\OXYCODONE HYDROCHLORIDE
     Dosage: UNK
  30. AZITHROMYCIN [Concomitant]
     Active Substance: AZITHROMYCIN
     Dosage: UNK
  31. POTASSIUM CHLORIDE [Concomitant]
     Active Substance: POTASSIUM CHLORIDE
     Dosage: UNK
  32. FLUDROCORTISONE [Concomitant]
     Active Substance: FLUDROCORTISONE

REACTIONS (11)
  - Dyspnoea [Unknown]
  - Weight increased [Unknown]
  - Pain [Unknown]
  - Fatigue [Unknown]
  - Infection [Unknown]
  - Sweating fever [Unknown]
  - Injection site reaction [Unknown]
  - Stress [Unknown]
  - Drug ineffective for unapproved indication [Unknown]
  - Drug ineffective [Unknown]
  - Product dose omission in error [Unknown]

NARRATIVE: CASE EVENT DATE: 20230101
